FAERS Safety Report 7436959-8 (Version None)
Quarter: 2011Q2

REPORT INFORMATION
  Report Type: 
  Country: None (occurrence: None)
  Receive Date: 20110426
  Receipt Date: 20110419
  Transmission Date: 20111010
  Serious: Yes (Death, Hospitalization)
  Sender: FDA-Public Use
  Company Number: DE-SANOFI-AVENTIS-2011SA006751

PATIENT
  Age: 77 Year
  Sex: Male
  Weight: 94 kg

DRUGS (10)
  1. PANTOZOL [Concomitant]
  2. TORSEMIDE [Concomitant]
  3. SIMVASTATIN [Concomitant]
  4. PREDNISOLONE [Suspect]
     Indication: PROSTATE CANCER
     Dates: start: 20110120
  5. PHENPROCOUMON [Concomitant]
  6. BISOPROLOL [Concomitant]
  7. DEKRISTOL [Concomitant]
  8. METOCLOPRAMIDE [Concomitant]
  9. CABAZITAXEL [Suspect]
     Indication: PROSTATE CANCER
     Route: 042
     Dates: start: 20110120, end: 20110120
  10. AMLODIPINE [Concomitant]

REACTIONS (3)
  - PANCYTOPENIA [None]
  - DISEASE PROGRESSION [None]
  - SEPSIS [None]
